FAERS Safety Report 6315108-3 (Version None)
Quarter: 2009Q3

REPORT INFORMATION
  Report Type: 
  Country: None (occurrence: None)
  Receive Date: 20090819
  Receipt Date: 20090818
  Transmission Date: 20100115
  Serious: Yes (Other)
  Sender: FDA-Public Use
  Company Number: DE-AMGEN-UK360588

PATIENT
  Sex: Female

DRUGS (1)
  1. NPLATE [Suspect]
     Indication: PRE-EXISTING DISEASE
     Dates: start: 20090301

REACTIONS (2)
  - PERICARDIAL EFFUSION [None]
  - PLATELET COUNT DECREASED [None]
